FAERS Safety Report 6041600-5 (Version None)
Quarter: 2009Q1

REPORT INFORMATION
  Report Type: 
  Country: None (occurrence: None)
  Receive Date: 20090116
  Receipt Date: 20081023
  Transmission Date: 20090719
  Serious: No
  Sender: FDA-Public Use
  Company Number: US-BRISTOL-MYERS SQUIBB COMPANY-14382949

PATIENT
  Age: 36 Year
  Sex: Female

DRUGS (2)
  1. ABILIFY [Suspect]
     Indication: BIPOLAR DISORDER
     Dosage: STARTED AS 2MG INCREASED TO 5MG AND DECREASED TO 2MG.
  2. EFFEXOR XR [Suspect]
     Indication: BIPOLAR DISORDER
     Dosage: STARTED AS 37.5MG INCREASED TO 75MG AND DECREASED TO 37.5MG.

REACTIONS (1)
  - AKATHISIA [None]
